FAERS Safety Report 9027387 (Version 2)
Quarter: 2013Q1

REPORT INFORMATION
  Report Type: Spontaneous
  Country: US (occurrence: US)
  Receive Date: 20130124
  Receipt Date: 20130225
  Transmission Date: 20140127
  Serious: Yes (Hospitalization)
  Sender: FDA-Public Use
  Company Number: US-AMGEN-USASP2013001852

PATIENT
  Sex: Female
  Weight: 84.81 kg

DRUGS (2)
  1. ENBREL [Suspect]
     Indication: RHEUMATOID ARTHRITIS
     Dosage: 50 MG, WEEKLY
     Route: 058
     Dates: start: 20100706, end: 20121127
  2. MTX                                /00113801/ [Concomitant]
     Dosage: 15 MG, QWK
     Route: 048
     Dates: start: 20100526, end: 20121126

REACTIONS (2)
  - Cellulitis gangrenous [Recovered/Resolved]
  - Skin infection [Unknown]
